FAERS Safety Report 25359641 (Version 1)
Quarter: 2025Q2

REPORT INFORMATION
  Report Type: Spontaneous
  Country: US (occurrence: US)
  Receive Date: 20250526
  Receipt Date: 20250526
  Transmission Date: 20250716
  Serious: No
  Sender: BRISTOL-MYERS SQUIBB COMPANY
  Company Number: US-BRISTOL-MYERS SQUIBB COMPANY-2025-071988

PATIENT
  Age: 51 Year
  Sex: Female
  Weight: 58.51 kg

DRUGS (1)
  1. ORENCIA [Suspect]
     Active Substance: ABATACEPT
     Indication: Rheumatoid arthritis
     Dosage: DOSE: 125 MG/ML
     Route: 058
     Dates: start: 20250513

REACTIONS (4)
  - Device delivery system issue [Unknown]
  - Incorrect dose administered [Unknown]
  - Injection site bruising [Unknown]
  - Injection site haemorrhage [Unknown]

NARRATIVE: CASE EVENT DATE: 20250513
